FAERS Safety Report 6408461-3 (Version None)
Quarter: 2009Q4

REPORT INFORMATION
  Report Type: 
  Country: None (occurrence: None)
  Receive Date: 20091021
  Receipt Date: 20091019
  Transmission Date: 20100525
  Serious: Yes (Other)
  Sender: FDA-Public Use
  Company Number: SG-BRISTOL-MYERS SQUIBB COMPANY-14821615

PATIENT
  Age: 60 Year
  Sex: Female

DRUGS (1)
  1. KENALOG [Suspect]
     Dosage: KENALOG UNFILTERED;1 DOSAGE FORM=40MG/ML.
     Route: 047

REACTIONS (1)
  - CORNEAL DISORDER [None]
